FAERS Safety Report 8288902-X (Version None)
Quarter: 2012Q2

REPORT INFORMATION
  Report Type: 
  Country: None (occurrence: None)
  Receive Date: 20120412
  Receipt Date: 20120328
  Transmission Date: 20120825
  Serious: Yes (Hospitalization)
  Sender: FDA-Public Use
  Company Number: DEP_00604_2012

PATIENT
  Age: 49 Year
  Sex: Male

DRUGS (6)
  1. GABAPENTIN [Suspect]
     Indication: BACK PAIN
     Dosage: (600 MG 6X/DAY ORAL), (600 MG 1X/8 HOURS, BEGAN TX ORAL)
     Route: 048
  2. BISOPROLOL FUMARATE [Concomitant]
  3. PAROXETINE [Concomitant]
  4. EPROSARTAN [Concomitant]
  5. MIANSERIN [Concomitant]
  6. DISULFIRAM [Concomitant]

REACTIONS (17)
  - ASPARTATE AMINOTRANSFERASE INCREASED [None]
  - ALANINE AMINOTRANSFERASE INCREASED [None]
  - ANURIA [None]
  - DIALYSIS [None]
  - SOMNOLENCE [None]
  - URINE KETONE BODY PRESENT [None]
  - MYOCLONUS [None]
  - RHABDOMYOLYSIS [None]
  - RENAL FAILURE ACUTE [None]
  - DEHYDRATION [None]
  - BLOOD GLUCOSE INCREASED [None]
  - DELIRIUM [None]
  - DISORIENTATION [None]
  - BLOOD LACTATE DEHYDROGENASE INCREASED [None]
  - HYPERKALAEMIA [None]
  - BLOOD PRESSURE DECREASED [None]
  - METABOLIC ACIDOSIS [None]
